FAERS Safety Report 4482330-0 (Version None)
Quarter: 2004Q4

REPORT INFORMATION
  Report Type: 
  Country: None (occurrence: None)
  Receive Date: 20041022
  Receipt Date: 20040216
  Transmission Date: 20050328
  Serious: Yes (Death)
  Sender: FDA-Public Use
  Company Number: GB-ROCHE-358868

PATIENT
  Age: 18 Year
  Sex: Male
  Weight: 84 kg

DRUGS (1)
  1. ROACCUTANE [Suspect]
     Dosage: TAKEN INTERMITTENTLY FOR 3 YEARS.
     Route: 048
     Dates: start: 20000615, end: 20021215

REACTIONS (2)
  - CHEMICAL POISONING [None]
  - COMPLETED SUICIDE [None]
